FAERS Safety Report 9075032 (Version 2)
Quarter: 2013Q1

REPORT INFORMATION
  Report Type: Spontaneous
  Country: AT (occurrence: AT)
  Receive Date: 20130129
  Receipt Date: 20130213
  Transmission Date: 20140127
  Serious: Yes (Other)
  Sender: FDA-Public Use
  Company Number: AT-BAYER-2013-011004

PATIENT
  Sex: Male

DRUGS (1)
  1. ULTRAVIST [Suspect]
     Dosage: 300MG.J/ML

REACTIONS (9)
  - Chills [Unknown]
  - Respiratory distress [Unknown]
  - Erythema [Unknown]
  - Dysphagia [Unknown]
  - Swelling [Unknown]
  - Blister [Unknown]
  - Vomiting [Unknown]
  - Urticaria [Unknown]
  - Pruritus generalised [Unknown]
